FAERS Safety Report 5661376-0 (Version None)
Quarter: 2008Q1

REPORT INFORMATION
  Report Type: 
  Country: None (occurrence: None)
  Receive Date: 20080311
  Receipt Date: 20080228
  Transmission Date: 20080703
  Serious: Yes (Death, Other)
  Sender: FDA-Public Use
  Company Number: CN-PFIZER INC-2008018766

PATIENT

DRUGS (1)
  1. ZYVOX [Suspect]
     Indication: PROPHYLAXIS

REACTIONS (3)
  - COMA HEPATIC [None]
  - HEPATIC FAILURE [None]
  - LIVER FUNCTION TEST ABNORMAL [None]
